FAERS Safety Report 9523920 (Version 2)
Quarter: 2013Q4

REPORT INFORMATION
  Report Type: Spontaneous
  Country: US (occurrence: None)
  Receive Date: 20130912
  Receipt Date: 20131129
  Transmission Date: 20140711
  Serious: Yes (Other)
  Sender: FDA-Public Use
  Company Number: ADR-2013-01594

PATIENT
  Age: 48 Year
  Sex: Male

DRUGS (3)
  1. LIORESAL [Suspect]
     Indication: MUSCLE SPASTICITY
     Dosage: 375.4 MG/DAY
  2. ORAL BACLOFEN [Suspect]
  3. UNSPECIFIED ANTI-HYPERSENSITIVE AGENTS [Concomitant]

REACTIONS (2)
  - Oedema peripheral [None]
  - Pulmonary oedema [None]
